FAERS Safety Report 23764940 (Version 3)
Quarter: 2024Q2

REPORT INFORMATION
  Report Type: Spontaneous
  Country: CA (occurrence: CA)
  Receive Date: 20240420
  Receipt Date: 20240618
  Transmission Date: 20240716
  Serious: Yes (Hospitalization, Other)
  Sender: FDA-Public Use
  Company Number: CA-CELLTRION INC.-2024CA009246

PATIENT

DRUGS (4)
  1. INFLECTRA [Suspect]
     Active Substance: INFLIXIMAB-DYYB
     Indication: Crohn^s disease
     Dosage: 10 MG/KG, OR 600 MG Q 0, 2, 6 WEEKS, THEN EVERY 8 WEEKS
     Route: 042
     Dates: start: 20190308, end: 20190315
  2. INFLECTRA [Suspect]
     Active Substance: INFLIXIMAB-DYYB
     Dosage: 1 DF, 600 MG, 7.5 MG/KG (ROUNDED UP TO NEAREST 100).Q 6 WEEKS, THEN EVERY 8 WEEKS
     Route: 042
     Dates: start: 20190403
  3. INFLECTRA [Suspect]
     Active Substance: INFLIXIMAB-DYYB
     Dosage: 1 DF, 600 MG, 7.5 MG/KG (ROUNDED UP TO NEAREST 100).Q 6 WEEKS, THEN EVERY 8 WEEKS
     Route: 042
     Dates: start: 20240229
  4. INFLECTRA [Suspect]
     Active Substance: INFLIXIMAB-DYYB
     Dosage: 600 MG, AFTER 8 WEEKS
     Route: 042
     Dates: start: 20240425

REACTIONS (6)
  - Gastrointestinal obstruction [Unknown]
  - Condition aggravated [Recovering/Resolving]
  - Vomiting [Unknown]
  - Flatulence [Unknown]
  - Anal fissure [Not Recovered/Not Resolved]
  - Off label use [Unknown]

NARRATIVE: CASE EVENT DATE: 20190308
